FAERS Safety Report 20002075 (Version 2)
Quarter: 2021Q4

REPORT INFORMATION
  Report Type: Spontaneous
  Country: US (occurrence: US)
  Receive Date: 20211027
  Receipt Date: 20211116
  Transmission Date: 20220303
  Serious: No
  Sender: FDA-Public Use
  Company Number: US-PFIZER INC-2021397227

PATIENT
  Age: 35 Year
  Sex: Female

DRUGS (4)
  1. DIPHENHYDRAMINE HYDROCHLORIDE [Suspect]
     Active Substance: DIPHENHYDRAMINE HYDROCHLORIDE
     Dosage: UNK
     Route: 048
  2. FEXOFENADINE [Suspect]
     Active Substance: FEXOFENADINE HYDROCHLORIDE
     Route: 048
  3. LORATADINE [Suspect]
     Active Substance: LORATADINE
     Route: 048
  4. CORTISONE [Suspect]
     Active Substance: CORTISONE
     Route: 061

REACTIONS (1)
  - Therapeutic product effect incomplete [Unknown]
